FAERS Safety Report 18039597 (Version 2)
Quarter: 2020Q4

REPORT INFORMATION
  Report Type: Spontaneous
  Country: US (occurrence: US)
  Receive Date: 20200717
  Receipt Date: 20201210
  Transmission Date: 20210113
  Serious: Yes (Death, Other)
  Sender: FDA-Public Use
  Company Number: US-TEVA-2020-US-1802764

PATIENT
  Age: 76 Year
  Sex: Male

DRUGS (14)
  1. VALSARTAN CAMBER [Suspect]
     Active Substance: VALSARTAN
     Indication: HYPERTENSION
     Dosage: 160 MG
     Route: 065
     Dates: start: 20150616, end: 20160210
  2. LEVOTHYROXINE. [Concomitant]
     Active Substance: LEVOTHYROXINE
     Indication: THYROID DISORDER
     Dosage: 75 MILLIGRAM DAILY;
     Dates: start: 20140124, end: 2018
  3. VALSARTAN AUROBINDO [Suspect]
     Active Substance: VALSARTAN
     Route: 065
     Dates: start: 20180125, end: 20180224
  4. VALSARTAN SOLCO [Suspect]
     Active Substance: VALSARTAN
     Dosage: 80 MG
     Route: 065
     Dates: start: 20161102, end: 20161202
  5. DILTIAZEM. [Concomitant]
     Active Substance: DILTIAZEM
     Indication: BLOOD PRESSURE MEASUREMENT
     Dosage: 120 MILLIGRAM DAILY;
     Dates: start: 20160302, end: 2018
  6. VALSARTAN AUROBINDO [Suspect]
     Active Substance: VALSARTAN
     Indication: HYPERTENSION
     Dosage: DOSAGE 80 MG
     Route: 065
     Dates: start: 20170706, end: 20170908
  7. CARVEDILOL. [Concomitant]
     Active Substance: CARVEDILOL
     Indication: BLOOD PRESSURE MEASUREMENT
     Dosage: 3.125 MILLIGRAM DAILY;
     Dates: start: 20141014, end: 20150413
  8. VALSARTAN AUROBINDO [Suspect]
     Active Substance: VALSARTAN
     Dosage: 80 MG
     Route: 065
     Dates: start: 20171021, end: 20171228
  9. VALSARTAN TEVA [Suspect]
     Active Substance: VALSARTAN
     Dosage: DOSAGE 80MG
     Route: 065
     Dates: start: 20170913, end: 20171013
  10. VALSARTAN AUROBINDO [Suspect]
     Active Substance: VALSARTAN
     Dosage: 80 MG
     Route: 065
     Dates: start: 20180330, end: 20180429
  11. TAMSULOSIN [Concomitant]
     Active Substance: TAMSULOSIN
     Indication: PROSTATIC DISORDER
     Dosage: .4 MILLIGRAM DAILY;
     Dates: start: 2011, end: 2018
  12. VALSARTAN TEVA [Suspect]
     Active Substance: VALSARTAN
     Indication: HYPERTENSION
     Dosage: DOSAGE 160 MG
     Route: 065
     Dates: start: 20160311, end: 20160410
  13. VALSARTAN SOLCO [Suspect]
     Active Substance: VALSARTAN
     Indication: HYPERTENSION
     Dosage: 80 MG
     Route: 065
     Dates: start: 20160819, end: 20160918
  14. SIMVASTATIN. [Concomitant]
     Active Substance: SIMVASTATIN
     Indication: BLOOD CHOLESTEROL ABNORMAL
     Dosage: 40 MILLIGRAM DAILY;
     Dates: start: 20140530, end: 2016

REACTIONS (3)
  - Hepatic cancer [Unknown]
  - Lung neoplasm malignant [Fatal]
  - Spinal cord neoplasm [Not Recovered/Not Resolved]

NARRATIVE: CASE EVENT DATE: 20160216
